FAERS Safety Report 16360143 (Version 1)
Quarter: 2019Q2

REPORT INFORMATION
  Report Type: Report from Study
  Country: None (occurrence: US)
  Receive Date: 20190528
  Receipt Date: 20190528
  Transmission Date: 20190711
  Serious: Yes (Hospitalization, Other)
  Sender: FDA-Public Use
  Company Number: US-ABBVIE-19K-163-2796261-00

PATIENT
  Sex: Female

DRUGS (2)
  1. HUMIRA [Suspect]
     Active Substance: ADALIMUMAB
     Indication: RHEUMATOID ARTHRITIS
     Dosage: CITRATE FREE
     Route: 058
     Dates: start: 201801, end: 201804
  2. HUMIRA [Suspect]
     Active Substance: ADALIMUMAB
     Dosage: CITRATE FREE
     Route: 058
     Dates: end: 201905

REACTIONS (9)
  - Bronchitis [Unknown]
  - Cardiac disorder [Unknown]
  - Dental care [Unknown]
  - Malaise [Unknown]
  - Drug ineffective [Unknown]
  - Intraocular pressure increased [Unknown]
  - Pneumonia [Unknown]
  - Thrombosis [Unknown]
  - Post procedural sepsis [Unknown]

NARRATIVE: CASE EVENT DATE: 2018
